FAERS Safety Report 9452975 (Version 1)
Quarter: 2013Q3

REPORT INFORMATION
  Report Type: Report from Study
  Country: US (occurrence: US)
  Receive Date: 20130812
  Receipt Date: 20130812
  Transmission Date: 20140515
  Serious: Yes (Hospitalization)
  Sender: FDA-Public Use
  Company Number: US-ROCHE-1259572

PATIENT
  Age: 85 Year
  Sex: 0

DRUGS (1)
  1. RITUXIMAB [Suspect]
     Indication: IMMUNE THROMBOCYTOPENIC PURPURA
     Route: 065

REACTIONS (1)
  - Pneumocystis jirovecii pneumonia [Unknown]
